FAERS Safety Report 11218814 (Version 2)
Quarter: 2015Q3

REPORT INFORMATION
  Report Type: Spontaneous
  Country: JP (occurrence: JP)
  Receive Date: 20150625
  Receipt Date: 20150827
  Transmission Date: 20151125
  Serious: Yes (Death, Other)
  Sender: FDA-Public Use
  Company Number: JP-GLAXOSMITHKLINE-JP2015JPN087585

PATIENT
  Age: 66 Year
  Sex: Male
  Weight: 46 kg

DRUGS (11)
  1. PANTOL (JAPAN) [Concomitant]
     Indication: CONSTIPATION
     Dosage: 500 MG, QD
     Dates: start: 20150616, end: 20150619
  2. FULCALIQ [Concomitant]
     Active Substance: AMINO ACIDS\CARBOHYDRATES\ELECTROLYTES NOS\VITAMINS
     Indication: PARENTERAL NUTRITION
     Dosage: 1003 ML, QD
     Dates: start: 20150609, end: 20150620
  3. PRIMPERAN [Concomitant]
     Active Substance: METOCLOPRAMIDE HYDROCHLORIDE
     Indication: VOMITING
     Dosage: UNK
     Dates: start: 20150609, end: 20150619
  4. ADONA (AC-17) [Concomitant]
     Indication: HAEMOPTYSIS
     Dosage: 50 MG, QD
     Dates: start: 20150609, end: 20150619
  5. ROPION [Concomitant]
     Active Substance: FLURBIPROFEN AXETIL
     Indication: PAIN
     Dosage: 50 MG, BID
     Dates: start: 20150602, end: 20150619
  6. ROPION [Concomitant]
     Active Substance: FLURBIPROFEN AXETIL
     Indication: PYREXIA
  7. DEXART [Concomitant]
     Active Substance: DEXAMETHASONE SODIUM PHOSPHATE
     Indication: TUMOUR ASSOCIATED FEVER
     Dosage: 6.6 MG, QD
     Dates: start: 20150609, end: 20150619
  8. DEXART [Concomitant]
     Active Substance: DEXAMETHASONE SODIUM PHOSPHATE
     Indication: DECREASED APPETITE
  9. FAMOTIDINE. [Concomitant]
     Active Substance: FAMOTIDINE
     Indication: GASTRIC ULCER HAEMORRHAGE
     Dosage: 20 MG, BID
     Dates: start: 20150608, end: 20150619
  10. TRANEXAMIC ACID. [Concomitant]
     Active Substance: TRANEXAMIC ACID
     Indication: HAEMOPTYSIS
     Dosage: 1 G, QD
     Dates: start: 20150609, end: 20150619
  11. VOTRIENT [Suspect]
     Active Substance: PAZOPANIB HYDROCHLORIDE
     Indication: SMALL INTESTINE LEIOMYOSARCOMA
     Dosage: 400 MG, QD
     Route: 048
     Dates: start: 20150618, end: 20150619

REACTIONS (3)
  - Pneumonia bacterial [Fatal]
  - Cardio-respiratory arrest [Unknown]
  - Respiratory disorder [Unknown]

NARRATIVE: CASE EVENT DATE: 20150618
